FAERS Safety Report 14439806 (Version 2)
Quarter: 2018Q1

REPORT INFORMATION
  Report Type: Spontaneous
  Country: IT (occurrence: IT)
  Receive Date: 20180125
  Receipt Date: 20180309
  Transmission Date: 20180509
  Serious: Yes (Hospitalization)
  Sender: FDA-Public Use
  Company Number: IT-ELI_LILLY_AND_COMPANY-IT201801006768

PATIENT
  Age: 78 Year
  Sex: Female

DRUGS (14)
  1. INSULIN GLARGINE [Suspect]
     Active Substance: INSULIN GLARGINE
     Indication: DIABETES MELLITUS
     Dosage: UNK UNK, UNKNOWN
     Route: 058
  2. LASIX [Concomitant]
     Active Substance: FUROSEMIDE
     Dosage: UNK UNK, UNKNOWN
     Route: 048
  3. COLECALCIFEROL [Concomitant]
     Active Substance: CHOLECALCIFEROL
     Dosage: UNK, UNKNOWN
     Route: 048
  4. BROTIZOLAM [Concomitant]
     Active Substance: BROTIZOLAM
     Dosage: UNK, UNKNOWN
     Route: 048
  5. BARNIDIPINE HYDROCHLORIDE [Concomitant]
     Active Substance: BARNIDIPINE HYDROCHLORIDE
     Dosage: UNK, UNKNOWN
     Route: 048
  6. ALLOPURINOL. [Concomitant]
     Active Substance: ALLOPURINOL
     Dosage: UNK, UNKNOWN
     Route: 048
  7. DELTACORTENE [Concomitant]
     Active Substance: PREDNISONE
     Dosage: UNK, UNKNOWN
     Route: 048
  8. DARBEPOETIN ALFA [Concomitant]
     Active Substance: DARBEPOETIN ALFA
     Dosage: UNK, UNKNOWN
     Route: 058
  9. ATENOLOL. [Concomitant]
     Active Substance: ATENOLOL
     Dosage: UNK, UNKNOWN
     Route: 048
  10. HUMALOG [Suspect]
     Active Substance: INSULIN LISPRO
     Indication: DIABETES MELLITUS
     Dosage: UNK UNK, UNKNOWN
     Route: 058
  11. TACROLIMUS. [Concomitant]
     Active Substance: TACROLIMUS
     Dosage: UNK, UNKNOWN
     Route: 048
  12. ESOMEPRAZOLE SODIUM. [Concomitant]
     Active Substance: ESOMEPRAZOLE SODIUM
     Dosage: UNK, UNKNOWN
     Route: 048
  13. CALCITRIOL. [Concomitant]
     Active Substance: CALCITRIOL
     Dosage: UNK, UNKNOWN
     Route: 048
  14. CARDIOASPIRIN [Concomitant]
     Active Substance: ASPIRIN
     Dosage: UNK, UNKNOWN
     Route: 048

REACTIONS (2)
  - Hypoglycaemia [Unknown]
  - Disorientation [Unknown]

NARRATIVE: CASE EVENT DATE: 20171121
